FAERS Safety Report 24377996 (Version 1)
Quarter: 2024Q3

REPORT INFORMATION
  Report Type: Spontaneous
  Country: US (occurrence: None)
  Receive Date: 20240927
  Receipt Date: 20240927
  Transmission Date: 20241016
  Serious: No
  Sender: Public
  Company Number: None

PATIENT
  Age: 80 Year
  Sex: Male
  Weight: 85 kg

DRUGS (2)
  1. LISINOPRIL [Suspect]
     Active Substance: LISINOPRIL
     Indication: Hypertension
     Dosage: 1.00 UNK -UNKNOWN DAILY ORAL ?
     Route: 048
     Dates: start: 19980305, end: 20231201
  2. SPIRONOLACTONE [Suspect]
     Active Substance: SPIRONOLACTONE
     Indication: Hypertension
     Dosage: DAILY ORAL
     Route: 048
     Dates: start: 20220503

REACTIONS (2)
  - Hyperkalaemia [None]
  - Acute kidney injury [None]

NARRATIVE: CASE EVENT DATE: 20231127
